FAERS Safety Report 15886180 (Version 1)
Quarter: 2019Q1

REPORT INFORMATION
  Report Type: Spontaneous
  Country: BE (occurrence: BE)
  Receive Date: 20190129
  Receipt Date: 20190129
  Transmission Date: 20190417
  Serious: Yes (Life-Threatening)
  Sender: FDA-Public Use
  Company Number: BE-FRESENIUS KABI-FK201900996

PATIENT
  Sex: Male

DRUGS (6)
  1. LIDOCAINE (MANUFACTURER UNKNOWN) [Suspect]
     Active Substance: LIDOCAINE
     Indication: EPIDURAL ANAESTHESIA
     Route: 064
  2. LIDOCAINE/EPINEPHRINE (MANUFACTURER UNKNOWN) [Suspect]
     Active Substance: EPINEPHRINE BITARTRATE\LIDOCAINE HYDROCHLORIDE
     Indication: EPIDURAL ANAESTHESIA
     Dosage: 1 PERCENT LIDOCAINE 20ML AND 1/200000 EPINEPHRINE 4 ML
     Route: 064
  3. SUFENTANIL [Concomitant]
     Active Substance: SUFENTANIL
     Indication: ANAESTHESIA
     Dosage: 25 UG
     Route: 064
  4. ROPIVACAINE. [Concomitant]
     Active Substance: ROPIVACAINE HYDROCHLORIDE
     Indication: ANAESTHESIA
     Route: 064
  5. LIDOCAINE (MANUFACTURER UNKNOWN) [Suspect]
     Active Substance: LIDOCAINE
     Route: 064
  6. SODIUM CHLORIDE. [Concomitant]
     Active Substance: SODIUM CHLORIDE
     Indication: ANAESTHESIA
     Route: 064

REACTIONS (9)
  - Mydriasis [Recovered/Resolved]
  - Foetal exposure during pregnancy [Recovered/Resolved]
  - Toxicity to various agents [Recovered/Resolved]
  - Heart rate decreased [Recovered/Resolved]
  - Apnoea [Recovered/Resolved]
  - Hypotension [Recovered/Resolved]
  - Hypotonia [Recovered/Resolved]
  - Tonic convulsion [Recovered/Resolved]
  - Muscle contractions involuntary [Recovered/Resolved]
